FAERS Safety Report 6933071-9 (Version None)
Quarter: 2010Q3

REPORT INFORMATION
  Report Type: 
  Country: None (occurrence: None)
  Receive Date: 20100819
  Receipt Date: 20100810
  Transmission Date: 20110219
  Serious: Yes (Disabling)
  Sender: FDA-Public Use
  Company Number: JP-ABBOTT-10P-087-0654994-00

PATIENT
  Sex: Male

DRUGS (13)
  1. KALETRA [Suspect]
     Indication: HIV INFECTION
     Route: 048
     Dates: start: 20070221, end: 20090128
  2. NORVIR [Suspect]
     Indication: HIV INFECTION
     Route: 048
     Dates: start: 20090128, end: 20090617
  3. ZIDOVUDINE [Suspect]
     Indication: HIV INFECTION
     Route: 048
     Dates: start: 19961227, end: 20050921
  4. LAMIVUDINE [Suspect]
     Indication: HIV INFECTION
     Route: 048
     Dates: start: 19970228, end: 20050921
  5. EFAVIRENZ [Suspect]
     Indication: HIV INFECTION
     Dosage: 600 MG DAILY
     Route: 048
     Dates: start: 20050921, end: 20051004
  6. EFAVIRENZ [Suspect]
     Dosage: 600 MG DAILY
     Route: 048
     Dates: start: 20070207, end: 20070221
  7. FOSAMPENAVIR [Suspect]
     Indication: HIV INFECTION
     Route: 048
     Dates: start: 20090128, end: 20090617
  8. ABACAVIR SULFATE/LAMIVUDINE [Suspect]
     Indication: HIV INFECTION
     Route: 048
     Dates: start: 20090617, end: 20100127
  9. EMTRICITABINE W/TENOFOVIR [Suspect]
     Indication: HIV INFECTION
     Route: 048
     Dates: start: 20070207, end: 20090617
  10. EMTRICITABINE W/TENOFOVIR [Suspect]
     Route: 048
     Dates: start: 20100127
  11. RALTEGRAVIR [Suspect]
     Indication: HIV INFECTION
     Route: 048
     Dates: start: 20100127
  12. ETRAVIRINE [Suspect]
     Indication: HIV INFECTION
     Route: 048
     Dates: start: 20090617, end: 20100127
  13. SAQUINAVIR [Suspect]
     Indication: HIV INFECTION
     Dates: start: 19971003, end: 20050921

REACTIONS (4)
  - SPASTIC PARAPLEGIA [None]
  - SPINAL CORD DISORDER [None]
  - SUBACUTE COMBINED CORD DEGENERATION [None]
  - VITAMIN B12 DEFICIENCY [None]
